FAERS Safety Report 12725555 (Version 1)
Quarter: 2016Q3

REPORT INFORMATION
  Report Type: Spontaneous
  Country: US (occurrence: JP)
  Receive Date: 20160908
  Receipt Date: 20160908
  Transmission Date: 20161109
  Serious: Yes (Hospitalization)
  Sender: FDA-Public Use
  Company Number: JP-FRI-1000087394

PATIENT
  Sex: Male

DRUGS (3)
  1. ASENAPINE [Suspect]
     Active Substance: ASENAPINE
     Indication: SCHIZOPHRENIA
     Dosage: 10 MG
     Route: 060
     Dates: start: 2016, end: 2016
  2. ASENAPINE [Suspect]
     Active Substance: ASENAPINE
     Dosage: 20 MG
     Route: 060
     Dates: start: 2016
  3. PALIPERIDONE. [Concomitant]
     Active Substance: PALIPERIDONE

REACTIONS (1)
  - Delusion of grandeur [Unknown]

NARRATIVE: CASE EVENT DATE: 2016
